FAERS Safety Report 7362175-4 (Version None)
Quarter: 2011Q1

REPORT INFORMATION
  Report Type: 
  Country: None (occurrence: None)
  Receive Date: 20110318
  Receipt Date: 20110311
  Transmission Date: 20110831
  Serious: Yes (Hospitalization, Other)
  Sender: FDA-Public Use
  Company Number: US-US-EMD SERONO, INC.-7043828

PATIENT
  Sex: Female

DRUGS (1)
  1. REBIF [Suspect]
     Indication: MULTIPLE SCLEROSIS
     Route: 058
     Dates: start: 20110211, end: 20110101

REACTIONS (4)
  - COAGULOPATHY [None]
  - PRURITUS [None]
  - BURNING SENSATION [None]
  - THROMBOSIS MESENTERIC VESSEL [None]
